FAERS Safety Report 16333505 (Version 32)
Quarter: 2021Q1

REPORT INFORMATION
  Report Type: Report from Study
  Country: JP (occurrence: JP)
  Receive Date: 20190520
  Receipt Date: 20210217
  Transmission Date: 20210419
  Serious: Yes (Hospitalization)
  Sender: FDA-Public Use
  Company Number: JP-EISAI MEDICAL RESEARCH-EC-2019-056515

PATIENT
  Age: 72 Year
  Sex: Female
  Weight: 58.4 kg

DRUGS (22)
  1. PEMBROLIZUMAB. [Suspect]
     Active Substance: PEMBROLIZUMAB
     Indication: ENDOMETRIAL CANCER
     Route: 041
     Dates: start: 20190111, end: 20190313
  2. BIO?THREE [Concomitant]
     Active Substance: HERBALS
     Route: 048
     Dates: start: 20190126, end: 20190515
  3. OLMESARTAN TOWA [Concomitant]
     Route: 048
     Dates: start: 20190325, end: 20190414
  4. LENVATINIB [Suspect]
     Active Substance: LENVATINIB
     Route: 048
     Dates: start: 20190605, end: 20190610
  5. LYRICA [Concomitant]
     Active Substance: PREGABALIN
     Route: 048
     Dates: start: 20180403, end: 20190515
  6. LOXOPROFEN SODIUM [Concomitant]
     Active Substance: LOXOPROFEN SODIUM
     Route: 048
     Dates: start: 20190301, end: 20190515
  7. LOCOID [Concomitant]
     Active Substance: HYDROCORTISONE BUTYRATE
     Route: 065
     Dates: start: 20190125
  8. NEOSTELIN GREEN [Concomitant]
     Active Substance: BENZETHONIUM CHLORIDE
     Route: 065
     Dates: start: 20190131
  9. LENVATINIB [Suspect]
     Active Substance: LENVATINIB
     Route: 048
     Dates: start: 20190624
  10. FML [Concomitant]
     Active Substance: FLUOROMETHOLONE
     Route: 065
     Dates: start: 20170120
  11. PEMBROLIZUMAB. [Suspect]
     Active Substance: PEMBROLIZUMAB
     Route: 041
     Dates: start: 20190424, end: 20190424
  12. PEMBROLIZUMAB. [Suspect]
     Active Substance: PEMBROLIZUMAB
     Route: 041
     Dates: start: 20190624
  13. BRONUCK [Concomitant]
     Active Substance: BROMFENAC SODIUM
     Route: 065
     Dates: start: 20170509
  14. PEMBROLIZUMAB. [Suspect]
     Active Substance: PEMBROLIZUMAB
     Route: 041
     Dates: start: 20190403, end: 20190403
  15. GOSHA?JINKI?GAN [Concomitant]
     Active Substance: HERBALS
     Route: 065
     Dates: start: 20180220, end: 20190515
  16. MAGMITT [Concomitant]
     Active Substance: MAGNESIUM OXIDE
     Route: 048
     Dates: start: 20171222, end: 20190515
  17. HIRUDOID [Concomitant]
     Active Substance: GLYCOSAMINOGLYCANS
     Route: 065
     Dates: start: 20190125
  18. LENVATINIB [Suspect]
     Active Substance: LENVATINIB
     Indication: ENDOMETRIAL CANCER
     Route: 048
     Dates: start: 20190111, end: 20190410
  19. FLUMETHOLON [Concomitant]
     Active Substance: FLUOROMETHOLONE
     Route: 065
     Dates: start: 20160513
  20. PEMBROLIZUMAB. [Suspect]
     Active Substance: PEMBROLIZUMAB
     Route: 041
     Dates: start: 20190605, end: 20190605
  21. TATHION [Concomitant]
     Active Substance: GLUTATHIONE
     Route: 065
     Dates: start: 20160513
  22. REBAMIPIDE [Concomitant]
     Active Substance: REBAMIPIDE
     Route: 048
     Dates: start: 20190126, end: 20190515

REACTIONS (3)
  - Cholecystitis [Recovered/Resolved]
  - Decreased appetite [Recovered/Resolved]
  - Adrenocorticotropic hormone deficiency [Recovering/Resolving]

NARRATIVE: CASE EVENT DATE: 20190410
